FAERS Safety Report 4642630-8 (Version None)
Quarter: 2005Q2

REPORT INFORMATION
  Report Type: 
  Country: None (occurrence: None)
  Receive Date: 20050422
  Receipt Date: 20050417
  Transmission Date: 20051028
  Serious: Yes (Other)
  Sender: FDA-Public Use
  Company Number: PHFR2005GB01552

PATIENT
  Age: 4 Year
  Sex: Male
  Weight: 13 kg

DRUGS (1)
  1. TEGRETOL [Suspect]
     Indication: CONVULSION
     Dosage: 10MG MANE/12.5MG NOCTE
     Route: 065

REACTIONS (4)
  - BLOOD POTASSIUM DECREASED [None]
  - DRUG LEVEL INCREASED [None]
  - GASTROINTESTINAL INFECTION [None]
  - METABOLIC ACIDOSIS [None]
